FAERS Safety Report 13909214 (Version 3)
Quarter: 2017Q3

REPORT INFORMATION
  Report Type: Report from Study
  Country: None (occurrence: BE)
  Receive Date: 20170828
  Receipt Date: 20170913
  Transmission Date: 20171127
  Serious: Yes (Hospitalization)
  Sender: FDA-Public Use
  Company Number: BE-ABBVIE-17K-013-2082884-00

PATIENT
  Sex: Male

DRUGS (6)
  1. ASAFLOW [Concomitant]
     Active Substance: ASPIRIN
     Indication: PRODUCT USED FOR UNKNOWN INDICATION
  2. DUODOPA [Suspect]
     Active Substance: CARBIDOPA\LEVODOPA
     Dosage: DOSES CONTINUOUSLY MONITORED AND ADAPTED
     Route: 050
     Dates: start: 20140123, end: 20170414
  3. DUODOPA [Suspect]
     Active Substance: CARBIDOPA\LEVODOPA
     Indication: PARKINSON^S DISEASE
     Dosage: MD=4ML??CD=2.5ML/HR DURING 16HRS ??EDA=1.5ML
     Route: 050
     Dates: start: 20120423, end: 20140123
  4. PROLOPA 250 [Concomitant]
     Indication: PRODUCT USED FOR UNKNOWN INDICATION
     Dosage: FORM STRENGTH: 200MG/50MG?4TIME/DAY AS RESCUE MEDICATION
  5. DUODOPA [Suspect]
     Active Substance: CARBIDOPA\LEVODOPA
     Dosage: MD=7ML??CD=2.8ML/HR DURING 16HRS ??EDA=2ML
     Route: 050
     Dates: start: 20170414
  6. PROLOPA 250 [Concomitant]
     Dosage: FORM STRENGTH: 200MG/50MG?4TIME/DAY AS RESCUE MEDICATION

REACTIONS (3)
  - Embedded device [Unknown]
  - Dysphagia [Unknown]
  - General physical health deterioration [Unknown]
